FAERS Safety Report 9883698 (Version 1)
Quarter: 2014Q1

REPORT INFORMATION
  Report Type: Spontaneous
  Country: US (occurrence: US)
  Receive Date: 20140210
  Receipt Date: 20140210
  Transmission Date: 20141002
  Serious: No
  Sender: FDA-Public Use
  Company Number: US-009507513-1401USA012734

PATIENT
  Age: 80 Year
  Sex: Male

DRUGS (1)
  1. COZAAR [Suspect]
     Indication: HYPERTENSION
     Dosage: 50 MG, ONCE DAILY
     Route: 048

REACTIONS (2)
  - Incorrect product storage [Unknown]
  - No adverse event [Unknown]
